FAERS Safety Report 7657251-2 (Version None)
Quarter: 2011Q3

REPORT INFORMATION
  Report Type: 
  Country: None (occurrence: None)
  Receive Date: 20110804
  Receipt Date: 20110801
  Transmission Date: 20111222
  Serious: Yes (Other)
  Sender: FDA-Public Use
  Company Number: BR-PFIZER INC-2011142431

PATIENT
  Age: 65 Year
  Sex: Female
  Weight: 80 kg

DRUGS (7)
  1. LIPITOR [Suspect]
     Indication: BLOOD CHOLESTEROL INCREASED
     Dosage: 20 MG, 1X/DAY
     Route: 048
     Dates: start: 20110228, end: 20110601
  2. ENALAPRIL [Concomitant]
     Dosage: UNK
     Dates: start: 20110202
  3. PLAVIX [Concomitant]
     Dosage: UNK
     Dates: start: 20110202
  4. ATENOLOL [Concomitant]
     Dosage: UNK
     Dates: start: 20110202
  5. ASPIRIN [Concomitant]
     Dosage: UNK
     Dates: start: 20110202
  6. OMEPRAZOLE [Concomitant]
     Dosage: UNK
     Dates: start: 20110202
  7. LASIX [Concomitant]
     Dosage: UNK
     Dates: start: 20110202

REACTIONS (2)
  - MYALGIA [None]
  - CHEST PAIN [None]
